FAERS Safety Report 4466457-5 (Version None)
Quarter: 2004Q4

REPORT INFORMATION
  Report Type: 
  Country: None (occurrence: None)
  Receive Date: 20041005
  Receipt Date: 20041001
  Transmission Date: 20050328
  Serious: Yes (Life-Threatening, Hospitalization, Disabling)
  Sender: FDA-Public Use
  Company Number: GR-MERCK-0410GRC00001

PATIENT
  Age: 51 Year
  Sex: Male

DRUGS (4)
  1. AUGMENTIN '250' [Concomitant]
     Indication: EAR INFECTION
     Route: 048
  2. BETAMETHASONE DIPROPIONATE AND GENTAMICIN SULFATE [Concomitant]
     Indication: EAR INFECTION
     Route: 061
  3. BETAMETHASONE SODIUM PHOSPHATE AND GENTAMICIN SULFATE [Concomitant]
     Indication: EAR INFECTION
     Route: 061
  4. VIOXX [Suspect]
     Indication: EAR INFECTION
     Route: 048
     Dates: start: 20030713, end: 20030722

REACTIONS (1)
  - MYOCARDIAL INFARCTION [None]
